FAERS Safety Report 18192884 (Version 1)
Quarter: 2020Q3

REPORT INFORMATION
  Report Type: Spontaneous
  Country: US (occurrence: US)
  Receive Date: 20200825
  Receipt Date: 20200825
  Transmission Date: 20201103
  Serious: No
  Sender: FDA-Public Use
  Company Number: US-ACCORD-187783

PATIENT
  Sex: Female

DRUGS (1)
  1. BUPROPION ACCORD [Suspect]
     Active Substance: BUPROPION HYDROCHLORIDE
     Indication: PRODUCT USED FOR UNKNOWN INDICATION

REACTIONS (4)
  - Product substitution issue [Unknown]
  - Product odour abnormal [Unknown]
  - Emotional disorder [Unknown]
  - Feeling abnormal [Unknown]
